FAERS Safety Report 13646811 (Version 1)
Quarter: 2017Q2

REPORT INFORMATION
  Report Type: Spontaneous
  Country: US (occurrence: US)
  Receive Date: 20170612
  Receipt Date: 20170612
  Transmission Date: 20170830
  Serious: Yes (Hospitalization)
  Sender: FDA-Public Use
  Company Number: None

PATIENT
  Age: 35 Year
  Sex: Female

DRUGS (12)
  1. BENADRYL [Concomitant]
     Active Substance: DIPHENHYDRAMINE HYDROCHLORIDE
  2. XOLAIR [Suspect]
     Active Substance: OMALIZUMAB
     Indication: ASTHMA
     Dosage: 300MG Q28 DA SQ
     Route: 058
     Dates: start: 201706, end: 20170612
  3. THERAA FLU [Concomitant]
  4. PULMICORT TURBUHALER [Concomitant]
     Active Substance: BUDESONIDE
  5. FUAFENESIN [Concomitant]
  6. EPIPEN [Concomitant]
     Active Substance: EPINEPHRINE
  7. IBUPROFEN. [Concomitant]
     Active Substance: IBUPROFEN
  8. MULIT VIT [Concomitant]
  9. XOPENX [Concomitant]
  10. SINGULAIR [Concomitant]
     Active Substance: MONTELUKAST SODIUM
  11. FISH OIL [Concomitant]
     Active Substance: FISH OIL
  12. PHENYLPHRIN [Concomitant]

REACTIONS (2)
  - Thirst [None]
  - Anaphylactoid reaction [None]

NARRATIVE: CASE EVENT DATE: 201706
